FAERS Safety Report 7590071-6 (Version None)
Quarter: 2011Q3

REPORT INFORMATION
  Report Type: 
  Country: None (occurrence: None)
  Receive Date: 20110705
  Receipt Date: 20110624
  Transmission Date: 20111222
  Serious: Yes (Hospitalization)
  Sender: FDA-Public Use
  Company Number: B0700806A

PATIENT
  Sex: Male
  Weight: 56 kg

DRUGS (21)
  1. ALKERAN [Suspect]
     Indication: STEM CELL TRANSPLANT
     Dosage: 70MGM2 PER DAY
     Route: 042
     Dates: start: 20020414, end: 20020415
  2. URSO 250 [Concomitant]
     Dosage: 600MG PER DAY
     Route: 048
     Dates: start: 20020410, end: 20020508
  3. ALLOPURINOL [Concomitant]
     Dosage: 100MG PER DAY
     Route: 048
     Dates: start: 20020419, end: 20020423
  4. SULFAMETHOXAZOLE [Concomitant]
     Dosage: .5IUAX PER DAY
     Route: 048
     Dates: start: 20020117, end: 20020414
  5. OZEX [Concomitant]
     Dosage: 300MG PER DAY
     Route: 048
     Dates: start: 20020410, end: 20020423
  6. NEUTROGIN [Concomitant]
     Dates: start: 20020418, end: 20020427
  7. DIFLUCAN [Concomitant]
     Dosage: 100MG PER DAY
     Route: 048
     Dates: start: 20020117, end: 20020509
  8. SELBEX [Concomitant]
     Dosage: 100MG PER DAY
     Route: 048
     Dates: start: 20020117
  9. PHENOTHIAZINE [Concomitant]
     Dosage: 15MG PER DAY
     Route: 048
     Dates: start: 20020416, end: 20020501
  10. MAXIPIME [Concomitant]
     Dosage: .5G PER DAY
     Route: 042
     Dates: start: 20020422, end: 20020424
  11. CALCIUM CARBONATE [Concomitant]
     Dosage: 1.5G PER DAY
     Route: 048
     Dates: start: 20020117
  12. KEITEN [Concomitant]
     Dosage: 1G PER DAY
     Route: 042
     Dates: start: 20020425, end: 20020429
  13. ALFAROL [Concomitant]
     Dosage: .25MCG PER DAY
     Route: 048
     Dates: start: 20020117
  14. TICLOPIDINE HCL [Concomitant]
     Dosage: 200MG PER DAY
     Route: 048
     Dates: start: 20020117, end: 20020423
  15. FAMOTIDINE [Concomitant]
     Dosage: 10MG PER DAY
     Route: 048
     Dates: start: 20020117, end: 20020424
  16. VALTREX [Concomitant]
     Dosage: 500MG PER DAY
     Route: 048
     Dates: start: 20020410
  17. OMEPRAZOLE [Concomitant]
     Dosage: 20MG PER DAY
     Route: 048
     Dates: start: 20020501, end: 20020508
  18. SULFAMETHOXAZOLE [Concomitant]
     Dosage: .5IUAX PER DAY
     Route: 048
     Dates: start: 20020509
  19. HAPTOGLOBIN [Concomitant]
     Dosage: 4IU3 PER DAY
     Route: 042
     Dates: start: 20020417, end: 20020417
  20. OMEPRAZOLE [Concomitant]
     Dosage: 40MG PER DAY
     Route: 042
     Dates: start: 20020425, end: 20020430
  21. ALLOID G [Concomitant]
     Dosage: 80ML PER DAY
     Route: 048
     Dates: start: 20020414, end: 20020503

REACTIONS (2)
  - PYREXIA [None]
  - INFECTION [None]
